FAERS Safety Report 14553231 (Version 1)
Quarter: 2018Q1

REPORT INFORMATION
  Report Type: Spontaneous
  Country: BE (occurrence: BE)
  Receive Date: 20180220
  Receipt Date: 20180220
  Transmission Date: 20180509
  Serious: Yes (Other)
  Sender: FDA-Public Use
  Company Number: BE-PFIZER INC-2018067012

PATIENT
  Age: 71 Year
  Sex: Female
  Weight: 76 kg

DRUGS (8)
  1. APREPITANT. [Concomitant]
     Active Substance: APREPITANT
     Dosage: 125 MG, SINGLE
     Dates: start: 20170913, end: 20170913
  2. ALIZAPRIDE [Concomitant]
     Active Substance: ALIZAPRIDE
     Dosage: 50 MG, SINGLE
     Route: 042
     Dates: start: 20170913, end: 20170913
  3. PACLITAXEL HOSPIRA [Suspect]
     Active Substance: PACLITAXEL
     Indication: OVARIAN CANCER
     Dosage: 316.75 MG, SINGLE, 6MG/ML CONCENTRATE FOR SOLUTION FOR INFUSION
     Route: 042
     Dates: start: 20170913, end: 20170913
  4. RANITIDINE. [Concomitant]
     Active Substance: RANITIDINE
     Dosage: 50 MG, SINGLE
     Route: 042
     Dates: start: 20170913, end: 20170913
  5. CETRIZINE [Concomitant]
     Active Substance: CETIRIZINE HYDROCHLORIDE
     Dosage: 50 MG, SINGLE
     Route: 048
     Dates: start: 20170913, end: 20170913
  6. CARBOPLATIN. [Concomitant]
     Active Substance: CARBOPLATIN
     Dosage: 500 MG, SINGLE
     Route: 042
     Dates: start: 20170913, end: 20170913
  7. AACIDEXAM /00016001/ [Concomitant]
     Dosage: 20 MG, SINGLE
     Route: 042
     Dates: start: 20170913, end: 20170913
  8. DEXAMETHASONE. [Concomitant]
     Active Substance: DEXAMETHASONE
     Dosage: 20 MG, UNK
     Route: 042

REACTIONS (3)
  - Oxygen saturation decreased [Recovered/Resolved]
  - Bronchospasm [Recovered/Resolved]
  - Pain [Recovered/Resolved]

NARRATIVE: CASE EVENT DATE: 20170913
